FAERS Safety Report 13759528 (Version 2)
Quarter: 2017Q3

REPORT INFORMATION
  Report Type: Spontaneous
  Country: FR (occurrence: FR)
  Receive Date: 20170717
  Receipt Date: 20170717
  Transmission Date: 20171127
  Serious: Yes (Hospitalization, Other)
  Sender: FDA-Public Use
  Company Number: FR-PFIZER INC-2017304034

PATIENT
  Age: 71 Year
  Sex: Male

DRUGS (1)
  1. TAHOR [Suspect]
     Active Substance: ATORVASTATIN CALCIUM
     Dosage: 10 MG, 1X/DAY
     Route: 048
     Dates: start: 2006, end: 201605

REACTIONS (8)
  - Hypogammaglobulinaemia [Unknown]
  - Lymphopenia [Unknown]
  - Vasculitis [Recovered/Resolved]
  - Chronic kidney disease [Unknown]
  - Sjogren^s syndrome [Unknown]
  - Blood immunoglobulin E increased [Unknown]
  - Hypertriglyceridaemia [Unknown]
  - Xerosis [Unknown]

NARRATIVE: CASE EVENT DATE: 2014
